FAERS Safety Report 21137094 (Version 1)
Quarter: 2022Q3

REPORT INFORMATION
  Report Type: Report from Study
  Country: AU (occurrence: AU)
  Receive Date: 20220727
  Receipt Date: 20220727
  Transmission Date: 20221027
  Serious: Yes (Other)
  Sender: FDA-Public Use
  Company Number: AU-ABBVIE-22K-008-4482514-00

PATIENT
  Age: 72 Year
  Sex: Male

DRUGS (4)
  1. LEUPROLIDE ACETATE [Suspect]
     Active Substance: LEUPROLIDE ACETATE
     Indication: Prostate cancer
     Route: 030
     Dates: start: 2020
  2. MORPHINE [Suspect]
     Active Substance: MORPHINE
     Indication: Pain management
     Route: 065
     Dates: end: 202206
  3. NORSPAN [Concomitant]
     Active Substance: BUPRENORPHINE
     Indication: Pain
     Dosage: PATCH
  4. XGEVA [Concomitant]
     Active Substance: DENOSUMAB
     Indication: Product used for unknown indication

REACTIONS (2)
  - Eyelid ptosis [Unknown]
  - Confusional state [Not Recovered/Not Resolved]

NARRATIVE: CASE EVENT DATE: 20220601
